FAERS Safety Report 13639327 (Version 1)
Quarter: 2017Q2

REPORT INFORMATION
  Report Type: Spontaneous
  Country: US (occurrence: US)
  Receive Date: 20170609
  Receipt Date: 20170609
  Transmission Date: 20170830
  Serious: Yes (Hospitalization)
  Sender: FDA-Public Use
  Company Number: US-ROCHE-776290

PATIENT
  Age: 58 Year
  Sex: Female
  Weight: 68 kg

DRUGS (3)
  1. CHANTIX [Suspect]
     Active Substance: VARENICLINE TARTRATE
     Indication: SMOKING CESSATION THERAPY
     Dosage: FILM COATED TABLET
     Route: 048
     Dates: start: 201102, end: 20110418
  2. CLONAZEPAM. [Suspect]
     Active Substance: CLONAZEPAM
     Indication: ADVERSE DRUG REACTION
     Route: 048
     Dates: start: 20110419, end: 20110419
  3. ALLOPURINOL. [Concomitant]
     Active Substance: ALLOPURINOL
     Indication: MIGRAINE
     Dosage: FORM: PILLS. DOSE: UNKNOWN
     Route: 065

REACTIONS (1)
  - Suicide attempt [Unknown]

NARRATIVE: CASE EVENT DATE: 20110419
